FAERS Safety Report 8238818-X (Version None)
Quarter: 2012Q1

REPORT INFORMATION
  Report Type: 
  Country: None (occurrence: None)
  Receive Date: 20120327
  Receipt Date: 20120322
  Transmission Date: 20120608
  Serious: Yes (Other)
  Sender: FDA-Public Use
  Company Number: CHPA2012US005366

PATIENT
  Age: 83 Year
  Sex: Female

DRUGS (1)
  1. PREVACID 24 HR [Suspect]
     Indication: OESOPHAGEAL STENOSIS
     Dosage: 15 MG, QD
     Route: 048
     Dates: start: 20100101

REACTIONS (4)
  - CONDITION AGGRAVATED [None]
  - INCORRECT DRUG ADMINISTRATION DURATION [None]
  - OFF LABEL USE [None]
  - OESOPHAGEAL STENOSIS [None]
